FAERS Safety Report 26042729 (Version 2)
Quarter: 2025Q4

REPORT INFORMATION
  Report Type: Spontaneous
  Country: US (occurrence: US)
  Receive Date: 20251113
  Receipt Date: 20251226
  Transmission Date: 20260117
  Serious: No
  Sender: NOVARTIS
  Company Number: US-002147023-NVSC2025US170905

PATIENT
  Age: 42 Year
  Sex: Female

DRUGS (1)
  1. ILARIS [Suspect]
     Active Substance: CANAKINUMAB
     Indication: Gout
     Dosage: 150 MG, Q12WEEKS
     Route: 058
     Dates: start: 20250808

REACTIONS (4)
  - Pyrexia [Recovering/Resolving]
  - Chills [Recovering/Resolving]
  - Nasopharyngitis [Recovering/Resolving]
  - Rhinorrhoea [Recovering/Resolving]

NARRATIVE: CASE EVENT DATE: 20251102
